FAERS Safety Report 4723341-7 (Version None)
Quarter: 2005Q3

REPORT INFORMATION
  Report Type: 
  Country: None (occurrence: None)
  Receive Date: 20050719
  Receipt Date: 20050308
  Transmission Date: 20060218
  Serious: Yes (Hospitalization)
  Sender: FDA-Public Use
  Company Number: 2005BI005366

PATIENT
  Age: 44 Year
  Sex: Male
  Weight: 81.6475 kg

DRUGS (3)
  1. AVONEX [Suspect]
     Indication: MULTIPLE SCLEROSIS
     Dosage: 30 UG; QW; IM
     Route: 030
     Dates: start: 20030901
  2. VICODIN [Concomitant]
  3. SOMA [Concomitant]

REACTIONS (5)
  - CONFUSIONAL STATE [None]
  - GLUCOSE TOLERANCE IMPAIRED [None]
  - MULTIPLE SCLEROSIS RELAPSE [None]
  - PAIN [None]
  - SPONDYLITIS [None]
